FAERS Safety Report 7769155-5 (Version None)
Quarter: 2011Q3

REPORT INFORMATION
  Report Type: 
  Country: None (occurrence: None)
  Receive Date: 20110922
  Receipt Date: 20101119
  Transmission Date: 20111222
  Serious: No
  Sender: FDA-Public Use
  Company Number: US-ASTRAZENECA-2010SE35320

PATIENT
  Sex: Male
  Weight: 90.7 kg

DRUGS (7)
  1. CLONAZEPAM [Concomitant]
     Indication: ANXIETY
     Route: 048
     Dates: end: 20100716
  2. ZOLOFT [Concomitant]
     Route: 048
  3. SEROQUEL [Suspect]
     Indication: SLEEP DISORDER
     Route: 048
     Dates: start: 20090101, end: 20100101
  4. SEROQUEL [Suspect]
     Route: 048
     Dates: start: 20100101
  5. SEROQUEL [Suspect]
     Route: 048
  6. PROPRANOLOL [Concomitant]
     Indication: HYPERTENSION
     Route: 048
  7. CLONAZEPAM [Concomitant]
     Route: 048
     Dates: start: 20100716

REACTIONS (5)
  - POOR QUALITY SLEEP [None]
  - INTENTIONAL DRUG MISUSE [None]
  - MIDDLE INSOMNIA [None]
  - BALANCE DISORDER [None]
  - DRUG DOSE OMISSION [None]
